FAERS Safety Report 14786018 (Version 2)
Quarter: 2020Q3

REPORT INFORMATION
  Report Type: Report from Study
  Country: KR (occurrence: KR)
  Receive Date: 20180420
  Receipt Date: 20180503
  Transmission Date: 20201105
  Serious: Yes (Hospitalization)
  Sender: FDA-Public Use
  Company Number: KR-ASTRAZENECA-2018SE48377

PATIENT
  Age: 936 Month
  Sex: Male

DRUGS (38)
  1. TREMELIMUMAB. [Suspect]
     Active Substance: TREMELIMUMAB
     Indication: NEOPLASM MALIGNANT
     Route: 042
     Dates: start: 20171212, end: 20171212
  2. CISPLATIN. [Suspect]
     Active Substance: CISPLATIN
     Indication: NEOPLASM MALIGNANT
     Dosage: 80.00 MG/M2
     Route: 042
     Dates: start: 20171117, end: 20171117
  3. DURVALUMAB. [Suspect]
     Active Substance: DURVALUMAB
     Indication: NEOPLASM MALIGNANT
     Route: 042
     Dates: start: 20180208, end: 20180208
  4. 5?FLUOROURACIL [Suspect]
     Active Substance: FLUOROURACIL
     Indication: NEOPLASM MALIGNANT
     Dosage: 800.00 MG/M2
     Route: 042
     Dates: start: 20171119, end: 20171120
  5. TREMELIMUMAB. [Suspect]
     Active Substance: TREMELIMUMAB
     Indication: NEOPLASM MALIGNANT
     Route: 042
     Dates: start: 20180208, end: 20180208
  6. 5?FLUOROURACIL [Suspect]
     Active Substance: FLUOROURACIL
     Indication: NEOPLASM MALIGNANT
     Dosage: 800.00 MG/M2
     Route: 042
     Dates: start: 20171212, end: 20171212
  7. 5?FLUOROURACIL [Suspect]
     Active Substance: FLUOROURACIL
     Indication: NEOPLASM MALIGNANT
     Dosage: 800.00 MG/M2
     Route: 042
     Dates: start: 20180208, end: 20180209
  8. 5?FLUOROURACIL [Suspect]
     Active Substance: FLUOROURACIL
     Indication: NEOPLASM MALIGNANT
     Dosage: 800.00 MG/M2
     Route: 042
     Dates: start: 20180211, end: 20180212
  9. TREMELIMUMAB. [Suspect]
     Active Substance: TREMELIMUMAB
     Indication: NEOPLASM MALIGNANT
     Route: 042
     Dates: start: 20180110, end: 20180110
  10. 5?FLUOROURACIL [Suspect]
     Active Substance: FLUOROURACIL
     Indication: NEOPLASM MALIGNANT
     Dosage: 800.00 MG/M2
     Route: 042
     Dates: start: 20171117, end: 20171118
  11. 5?FLUOROURACIL [Suspect]
     Active Substance: FLUOROURACIL
     Indication: NEOPLASM MALIGNANT
     Dosage: 800.00 MG/M2
     Route: 042
     Dates: start: 20171215, end: 20171216
  12. 5?FLUOROURACIL [Suspect]
     Active Substance: FLUOROURACIL
     Indication: NEOPLASM MALIGNANT
     Dosage: 800.00 MG/M2
     Route: 042
     Dates: start: 20180111, end: 20180112
  13. 5?FLUOROURACIL [Suspect]
     Active Substance: FLUOROURACIL
     Indication: NEOPLASM MALIGNANT
     Dosage: 800.00 MG/M2
     Route: 042
     Dates: start: 20180114, end: 20180115
  14. 5?FLUOROURACIL [Suspect]
     Active Substance: FLUOROURACIL
     Indication: NEOPLASM MALIGNANT
     Dosage: 800.00 MG/M2
     Route: 042
     Dates: start: 20180209, end: 20180210
  15. 5?FLUOROURACIL [Suspect]
     Active Substance: FLUOROURACIL
     Indication: NEOPLASM MALIGNANT
     Dosage: 800.00 MG/M2
     Route: 042
     Dates: start: 20180212, end: 20180213
  16. 5?FLUOROURACIL [Suspect]
     Active Substance: FLUOROURACIL
     Indication: NEOPLASM MALIGNANT
     Dosage: 800.00 MG/M2
     Route: 042
     Dates: start: 20171118, end: 20171119
  17. 5?FLUOROURACIL [Suspect]
     Active Substance: FLUOROURACIL
     Indication: NEOPLASM MALIGNANT
     Dosage: 800.00 MG/M2
     Route: 042
     Dates: start: 20171214, end: 20171215
  18. 5?FLUOROURACIL [Suspect]
     Active Substance: FLUOROURACIL
     Indication: NEOPLASM MALIGNANT
     Dosage: 800.00 MG/M2
     Route: 042
     Dates: start: 20180110, end: 20180111
  19. 5?FLUOROURACIL [Suspect]
     Active Substance: FLUOROURACIL
     Indication: NEOPLASM MALIGNANT
     Dosage: 800.00 MG/M2
     Route: 042
     Dates: start: 20180210, end: 20180211
  20. CISPLATIN. [Suspect]
     Active Substance: CISPLATIN
     Indication: NEOPLASM MALIGNANT
     Dosage: 80.00 MG/M2
     Route: 042
     Dates: start: 20171212, end: 20171212
  21. LANSOPRAZOLE. [Concomitant]
     Active Substance: LANSOPRAZOLE
     Indication: GASTROOESOPHAGEAL REFLUX DISEASE
     Route: 048
     Dates: start: 20180304
  22. DURVALUMAB. [Suspect]
     Active Substance: DURVALUMAB
     Indication: NEOPLASM MALIGNANT
     Route: 042
     Dates: start: 20171212, end: 20171212
  23. 5?FLUOROURACIL [Suspect]
     Active Substance: FLUOROURACIL
     Indication: NEOPLASM MALIGNANT
     Dosage: 800.00 MG/M2
     Route: 042
     Dates: start: 20171120, end: 20171121
  24. 5?FLUOROURACIL [Suspect]
     Active Substance: FLUOROURACIL
     Indication: NEOPLASM MALIGNANT
     Dosage: 800.00 MG/M2
     Route: 042
     Dates: start: 20171121, end: 20171121
  25. 5?FLUOROURACIL [Suspect]
     Active Substance: FLUOROURACIL
     Indication: NEOPLASM MALIGNANT
     Dosage: 800.00 MG/M2
     Route: 042
     Dates: start: 20180110, end: 20180111
  26. CISPLATIN. [Suspect]
     Active Substance: CISPLATIN
     Indication: NEOPLASM MALIGNANT
     Dosage: 80.00 MG/M2
     Route: 042
     Dates: start: 20180110, end: 20180110
  27. FENTANYL. [Concomitant]
     Active Substance: FENTANYL
     Indication: PAIN
     Dosage: 12.00 UG/H
     Route: 062
     Dates: start: 20180305
  28. DALTEPARIN SODIUM [Concomitant]
     Active Substance: DALTEPARIN SODIUM
     Indication: PULMONARY EMBOLISM
     Route: 058
     Dates: start: 20180322
  29. 5?FLUOROURACIL [Suspect]
     Active Substance: FLUOROURACIL
     Indication: NEOPLASM MALIGNANT
     Dosage: 800.00 MG/M2
     Route: 042
     Dates: start: 20171213, end: 20171214
  30. 5?FLUOROURACIL [Suspect]
     Active Substance: FLUOROURACIL
     Indication: NEOPLASM MALIGNANT
     Dosage: 800.00 MG/M2
     Route: 042
     Dates: start: 20171216, end: 20171217
  31. 5?FLUOROURACIL [Suspect]
     Active Substance: FLUOROURACIL
     Indication: NEOPLASM MALIGNANT
     Dosage: 800.00 MG/M2
     Route: 042
     Dates: start: 20180112, end: 20180113
  32. CISPLATIN. [Suspect]
     Active Substance: CISPLATIN
     Indication: NEOPLASM MALIGNANT
     Dosage: 80.00 MG/M2
     Route: 042
     Dates: start: 20180208, end: 20180208
  33. DURVALUMAB. [Suspect]
     Active Substance: DURVALUMAB
     Indication: NEOPLASM MALIGNANT
     Route: 042
     Dates: start: 20171117, end: 20171117
  34. DURVALUMAB. [Suspect]
     Active Substance: DURVALUMAB
     Indication: NEOPLASM MALIGNANT
     Route: 042
     Dates: start: 20180110, end: 20180110
  35. TREMELIMUMAB. [Suspect]
     Active Substance: TREMELIMUMAB
     Indication: NEOPLASM MALIGNANT
     Route: 042
     Dates: start: 20171117, end: 20171117
  36. 5?FLUOROURACIL [Suspect]
     Active Substance: FLUOROURACIL
     Indication: NEOPLASM MALIGNANT
     Dosage: 800.00 MG/M2
     Route: 042
     Dates: start: 20180113, end: 20180114
  37. CARBOXYMETHYL CELLULOSE [Concomitant]
     Indication: DRY EYE
     Dosage: 0.4ML AS REQUIRED
     Route: 047
  38. MAGNESIUM OXIDE. [Concomitant]
     Active Substance: MAGNESIUM OXIDE
     Dosage: 250.0MG AS REQUIRED
     Route: 048
     Dates: start: 20180323

REACTIONS (1)
  - Type 2 diabetes mellitus [Not Recovered/Not Resolved]

NARRATIVE: CASE EVENT DATE: 20180411
